FAERS Safety Report 6558420-5 (Version None)
Quarter: 2010Q1

REPORT INFORMATION
  Report Type: 
  Country: None (occurrence: None)
  Receive Date: 20100126
  Receipt Date: 20100115
  Transmission Date: 20100710
  Serious: Yes (Death)
  Sender: FDA-Public Use
  Company Number: DSA_42191_2009

PATIENT
  Sex: Female

DRUGS (3)
  1. XENAZINE [Suspect]
     Indication: HUNTINGTON'S CHOREA
     Dosage: 25 MG TID ORAL, DF, 12.5 MG QD ORAL
     Route: 048
     Dates: start: 20090101
  2. KLONOPIN [Concomitant]
  3. ARTANE [Concomitant]

REACTIONS (5)
  - BRONCHITIS [None]
  - DEPRESSED LEVEL OF CONSCIOUSNESS [None]
  - PNEUMONIA ASPIRATION [None]
  - PNEUMONIA BACTERIAL [None]
  - UNRESPONSIVE TO STIMULI [None]
